FAERS Safety Report 11868133 (Version 2)
Quarter: 2017Q3

REPORT INFORMATION
  Report Type: Report from Study
  Country: US (occurrence: US)
  Receive Date: 20151224
  Receipt Date: 20170915
  Transmission Date: 20171127
  Serious: Yes (Death, Hospitalization)
  Sender: FDA-Public Use
  Company Number: US-ACTELION-A-US2015-128934

PATIENT
  Age: 93 Year
  Sex: Male

DRUGS (6)
  1. OPSUMIT [Suspect]
     Active Substance: MACITENTAN
     Indication: PULMONARY ARTERIAL HYPERTENSION
     Dosage: 10 MG, UNK
     Route: 048
     Dates: start: 20150629
  2. REVATIO [Concomitant]
     Active Substance: SILDENAFIL CITRATE
  3. CEPHALEXIN. [Concomitant]
     Active Substance: CEPHALEXIN
     Dosage: 500 MG, UNK
  4. DIGOXIN. [Concomitant]
     Active Substance: DIGOXIN
     Dosage: 125 MG, UNK
  5. METOPROLOL. [Concomitant]
     Active Substance: METOPROLOL
     Dosage: 50 MG, UNK
  6. SPIRONOLACTONE. [Concomitant]
     Active Substance: SPIRONOLACTONE
     Dosage: 25 MG, UNK

REACTIONS (4)
  - Oedema peripheral [Unknown]
  - Death [Fatal]
  - Wound secretion [Unknown]
  - Dyspnoea [Unknown]
